FAERS Safety Report 23304098 (Version 1)
Quarter: 2023Q4

REPORT INFORMATION
  Report Type: Report from Study
  Country: US (occurrence: US)
  Receive Date: 20231218
  Receipt Date: 20231218
  Transmission Date: 20240110
  Serious: Yes (Other)
  Sender: FDA-Public Use
  Company Number: US-AUROBINDO-AUR-APL-2023-077861

PATIENT
  Age: 75 Year
  Sex: Female

DRUGS (14)
  1. IRINOTECAN HYDROCHLORIDE [Suspect]
     Active Substance: IRINOTECAN HYDROCHLORIDE
     Indication: Undifferentiated sarcoma
     Dosage: 1 CYLCLE
     Route: 065
  2. IRINOTECAN HYDROCHLORIDE [Suspect]
     Active Substance: IRINOTECAN HYDROCHLORIDE
     Indication: Primitive neuroectodermal tumour
  3. ADRIAMYCIN [Suspect]
     Active Substance: DOXORUBICIN HYDROCHLORIDE
     Indication: Undifferentiated sarcoma
     Dosage: 4 CYCLES
     Route: 065
  4. ADRIAMYCIN [Suspect]
     Active Substance: DOXORUBICIN HYDROCHLORIDE
     Indication: Primitive neuroectodermal tumour
  5. CYTOXAN [Suspect]
     Active Substance: CYCLOPHOSPHAMIDE
     Indication: Undifferentiated sarcoma
     Dosage: 4 CYCLES
     Route: 065
  6. CYTOXAN [Suspect]
     Active Substance: CYCLOPHOSPHAMIDE
     Indication: Primitive neuroectodermal tumour
  7. OLARATUMAB [Suspect]
     Active Substance: OLARATUMAB
     Indication: Undifferentiated sarcoma
     Dosage: 4 CYCLES
     Route: 065
  8. OLARATUMAB [Suspect]
     Active Substance: OLARATUMAB
     Indication: Primitive neuroectodermal tumour
  9. PAZOPANIB [Suspect]
     Active Substance: PAZOPANIB
     Indication: Undifferentiated sarcoma
  10. PAZOPANIB [Suspect]
     Active Substance: PAZOPANIB
     Indication: Primitive neuroectodermal tumour
  11. TEMOZOLOMIDE [Suspect]
     Active Substance: TEMOZOLOMIDE
     Indication: Undifferentiated sarcoma
     Dosage: 1 CYLCLE
     Route: 065
  12. TEMOZOLOMIDE [Suspect]
     Active Substance: TEMOZOLOMIDE
     Indication: Primitive neuroectodermal tumour
  13. VINCRISTINE [Suspect]
     Active Substance: VINCRISTINE
     Indication: Undifferentiated sarcoma
     Dosage: 4 CYCLES
     Route: 065
  14. VINCRISTINE [Suspect]
     Active Substance: VINCRISTINE
     Indication: Primitive neuroectodermal tumour

REACTIONS (1)
  - Drug ineffective [Unknown]
